FAERS Safety Report 4506759-7 (Version None)
Quarter: 2004Q4

REPORT INFORMATION
  Report Type: 
  Country: None (occurrence: None)
  Receive Date: 20041122
  Receipt Date: 20040603
  Transmission Date: 20050328
  Serious: Yes (Life-Threatening, Hospitalization)
  Sender: FDA-Public Use
  Company Number: US-ROCHE-370189

PATIENT
  Age: 49 Year
  Sex: Male
  Weight: 99.1 kg

DRUGS (10)
  1. PEGASYS [Suspect]
     Indication: HEPATITIS C
     Route: 058
     Dates: start: 20030711, end: 20040423
  2. COPEGUS [Suspect]
     Indication: HEPATITIS C
     Route: 048
     Dates: start: 20030711, end: 20040423
  3. NEUPOGEN [Concomitant]
     Indication: NEUTROPENIA
     Dosage: 2 DOSES ONLY, TWO WEEKS APART.
     Route: 058
     Dates: start: 20040517
  4. EFFEXOR XR [Concomitant]
     Dosage: GIVEN DAILY.
     Route: 048
     Dates: start: 20030711
  5. GLUCOPHAGE [Concomitant]
     Dosage: GIVEN DAILY.
     Route: 048
  6. ALLEGRA [Concomitant]
  7. UNKNOWN MEDICATION [Concomitant]
     Dosage: DRUG REPORTED AS FOREDIL MDI.
  8. AMBIEN [Concomitant]
  9. PRILOSEC [Concomitant]
  10. AEROBID [Concomitant]

REACTIONS (25)
  - AMYLOIDOSIS [None]
  - ASTHENIA [None]
  - BRONCHOSPASM [None]
  - BUNDLE BRANCH BLOCK LEFT [None]
  - BURSITIS [None]
  - CARDIAC FAILURE CONGESTIVE [None]
  - CARDIOMEGALY [None]
  - CARDIOMYOPATHY [None]
  - CELLULITIS [None]
  - GLOMERULONEPHRITIS [None]
  - LACERATION [None]
  - LUNG DISORDER [None]
  - LUNG INFILTRATION [None]
  - LYMPHOPROLIFERATIVE DISORDER [None]
  - MITRAL VALVE INCOMPETENCE [None]
  - NAUSEA [None]
  - NECK MASS [None]
  - NEPHROTIC SYNDROME [None]
  - NEUTROPENIA [None]
  - POST STREPTOCOCCAL GLOMERULONEPHRITIS [None]
  - PULMONARY EMBOLISM [None]
  - PULMONARY FIBROSIS [None]
  - PULMONARY HYPERTENSION [None]
  - RENAL FAILURE [None]
  - SYNCOPE [None]
